FAERS Safety Report 19376045 (Version 1)
Quarter: 2021Q2

REPORT INFORMATION
  Report Type: Spontaneous
  Country: CN (occurrence: CN)
  Receive Date: 20210604
  Receipt Date: 20210604
  Transmission Date: 20210717
  Serious: Yes (Hospitalization)
  Sender: FDA-Public Use
  Company Number: CN-BAXTER-2021BAX014069

PATIENT
  Age: 8 Year
  Sex: Male
  Weight: 28.5 kg

DRUGS (7)
  1. 0.9% SODIUM CHLORIDE INJECTION [Suspect]
     Active Substance: SODIUM CHLORIDE
     Dosage: DAY 1?5: CYCLOPHOSPHAMIDE 262.5 MG + 0.9% NS 63ML
     Route: 041
     Dates: start: 20210515, end: 20210519
  2. TOPOTECAN HYDROCHLORIDE. [Suspect]
     Active Substance: TOPOTECAN HYDROCHLORIDE
     Indication: NEUROBLASTOMA RECURRENT
     Dosage: DAY 1?5: TOPOTECAN HYDROCHLORIDE 0.79 MG + 0.9% NS 32ML
     Route: 041
     Dates: start: 20210515, end: 20210519
  3. ENDOXAN [Suspect]
     Active Substance: CYCLOPHOSPHAMIDE
     Indication: NEUROBLASTOMA RECURRENT
     Dosage: DAY 1?5: CYCLOPHOSPHAMIDE 262.5 MG + 0.9% NS 63ML
     Route: 041
     Dates: start: 20210515, end: 20210519
  4. MESNA. [Suspect]
     Active Substance: MESNA
     Indication: PROPHYLAXIS
     Dosage: DAY 1?5
     Route: 042
     Dates: start: 20210515, end: 20210519
  5. 0.9% SODIUM CHLORIDE INJECTION [Suspect]
     Active Substance: SODIUM CHLORIDE
     Indication: MEDICATION DILUTION
     Dosage: DAY 1?5: TOPOTECAN HYDROCHLORIDE 0.79 MG + 0.9% NS 32ML
     Route: 041
     Dates: start: 20210515, end: 20210519
  6. 0.9% SODIUM CHLORIDE INJECTION [Suspect]
     Active Substance: SODIUM CHLORIDE
     Dosage: DAY 1?5: ONDANSETRON HYDROCHLORIDE 5.3 MG + 0.9% NS 25 ML
     Route: 041
     Dates: start: 20210515, end: 20210519
  7. ONDANSETRON HYDROCHLORIDE. [Suspect]
     Active Substance: ONDANSETRON HYDROCHLORIDE
     Indication: PROPHYLAXIS OF NAUSEA AND VOMITING
     Dosage: DAY 1?5: ONDANSETRON HYDROCHLORIDE 5.3 MG + 0.9% NS 25 ML
     Route: 041
     Dates: start: 20210515, end: 20210519

REACTIONS (1)
  - Pancytopenia [Recovering/Resolving]

NARRATIVE: CASE EVENT DATE: 20210517
